FAERS Safety Report 9376841 (Version 1)
Quarter: 2013Q3

REPORT INFORMATION
  Report Type: Spontaneous
  Country: ES (occurrence: ES)
  Receive Date: 20130701
  Receipt Date: 20130701
  Transmission Date: 20140515
  Serious: Yes (Death, Hospitalization, Other)
  Sender: FDA-Public Use
  Company Number: ES-JNJFOC-20130617569

PATIENT
  Sex: Female

DRUGS (4)
  1. DOXORUBICIN [Suspect]
     Indication: BREAST CANCER
     Route: 042
  2. CYCLOPHOSPHAMIDE [Suspect]
     Indication: BREAST CANCER
     Route: 065
  3. TAXOTERE [Suspect]
     Indication: BREAST CANCER
     Route: 065
  4. 5-FU [Suspect]
     Indication: BREAST CANCER
     Route: 065

REACTIONS (6)
  - Death [Fatal]
  - Stomatitis [Unknown]
  - Breast cancer recurrent [Unknown]
  - Febrile neutropenia [Unknown]
  - Diarrhoea [Unknown]
  - Infection [Unknown]
